FAERS Safety Report 14166641 (Version 1)
Quarter: 2017Q4

REPORT INFORMATION
  Report Type: Spontaneous
  Country: US (occurrence: US)
  Receive Date: 20171106
  Receipt Date: 20171106
  Transmission Date: 20180321
  Serious: Yes (Other)
  Sender: FDA-Public Use
  Company Number: None

PATIENT
  Age: 54 Year
  Sex: Female

DRUGS (6)
  1. CARAFATE [Concomitant]
     Active Substance: SUCRALFATE
  2. GRISEOFULVIN. [Concomitant]
     Active Substance: GRISEOFULVIN
  3. TOPIRAMATE. [Suspect]
     Active Substance: TOPIRAMATE
     Indication: MIGRAINE
     Route: 048
     Dates: start: 20170627, end: 20171030
  4. PYRIDOSTIGMINE [Concomitant]
     Active Substance: PYRIDOSTIGMINE
  5. FROVATRIPTAN. [Concomitant]
     Active Substance: FROVATRIPTAN
  6. VERAPAMIL ER [Concomitant]
     Active Substance: VERAPAMIL HYDROCHLORIDE

REACTIONS (1)
  - Contusion [None]

NARRATIVE: CASE EVENT DATE: 20170701
